FAERS Safety Report 8519534-3 (Version None)
Quarter: 2012Q3

REPORT INFORMATION
  Report Type: 
  Country: None (occurrence: None)
  Receive Date: 20120718
  Receipt Date: 20111022
  Transmission Date: 20120928
  Serious: Yes (Hospitalization)
  Sender: FDA-Public Use
  Company Number: PHEH2011US013171

PATIENT
  Sex: Male

DRUGS (3)
  1. PENICILLIN V [Concomitant]
     Dosage: UNK UKN, UNK
     Route: 065
  2. HYDROXYUREA [Concomitant]
     Dosage: UNK UKN, UNK
     Route: 065
  3. EXJADE [Suspect]
     Indication: SICKLE CELL ANAEMIA
     Dosage: 750 MG, DAILY
     Route: 048
     Dates: start: 20080303

REACTIONS (1)
  - PNEUMONIA [None]
